FAERS Safety Report 9081866 (Version 1)
Quarter: 2013Q1

REPORT INFORMATION
  Report Type: Report from Study
  Country: PR (occurrence: PR)
  Receive Date: 20130130
  Receipt Date: 20130130
  Transmission Date: 20140127
  Serious: No
  Sender: FDA-Public Use
  Company Number: PR-ABBOTT-12P-131-0977304-00

PATIENT
  Age: 43 None
  Sex: Female
  Weight: 68.1 kg

DRUGS (1)
  1. HUMIRA [Suspect]
     Indication: PSORIASIS
     Dates: start: 201207

REACTIONS (3)
  - Malaise [Not Recovered/Not Resolved]
  - Dengue fever [Not Recovered/Not Resolved]
  - Arthropod bite [Unknown]
